FAERS Safety Report 8141159-2 (Version None)
Quarter: 2012Q1

REPORT INFORMATION
  Report Type: 
  Country: None (occurrence: None)
  Receive Date: 20120216
  Receipt Date: 20120213
  Transmission Date: 20120608
  Serious: No
  Sender: FDA-Public Use
  Company Number: US-PFIZER INC-2012003456

PATIENT
  Sex: Female

DRUGS (3)
  1. ATORVASTATIN CALCIUM [Suspect]
     Dosage: UNK
  2. SIMVASTATIN [Suspect]
     Dosage: UNK
  3. LIPITOR [Suspect]
     Dosage: UNK

REACTIONS (1)
  - BALANCE DISORDER [None]
